FAERS Safety Report 8514958-2 (Version None)
Quarter: 2012Q3

REPORT INFORMATION
  Report Type: 
  Country: None (occurrence: None)
  Receive Date: 20120717
  Receipt Date: 20120706
  Transmission Date: 20120928
  Serious: Yes (Hospitalization, Other)
  Sender: FDA-Public Use
  Company Number: JP-VERTEX PHARMACEUTICALS INC.-AE-2012-006220

PATIENT
  Age: 67 Year
  Sex: Female

DRUGS (14)
  1. TELAVIC (TELAPREVIR) [Suspect]
     Route: 048
     Dates: start: 20120404, end: 20120424
  2. REBETOL [Concomitant]
     Route: 048
     Dates: start: 20120411, end: 20120521
  3. GASTROM [Concomitant]
     Route: 048
     Dates: start: 20120321
  4. PEGINTERFERON ALFA-2B [Concomitant]
     Indication: HEPATITIS C
     Route: 058
     Dates: start: 20120308, end: 20120501
  5. REBETOL [Concomitant]
     Indication: HEPATITIS C
     Route: 048
     Dates: start: 20120308, end: 20120327
  6. PRAVASTATIN SODIUM [Concomitant]
     Route: 048
  7. TELAVIC (TELAPREVIR) [Suspect]
     Indication: HEPATITIS C
     Route: 048
     Dates: start: 20120308, end: 20120403
  8. REBETOL [Concomitant]
     Route: 048
     Dates: start: 20120404, end: 20120410
  9. PEGINTERFERON ALFA-2B [Concomitant]
     Route: 058
     Dates: start: 20120502
  10. TELAVIC (TELAPREVIR) [Suspect]
     Route: 048
     Dates: start: 20120425, end: 20120509
  11. REBETOL [Concomitant]
     Route: 048
     Dates: start: 20120328, end: 20120403
  12. VOLTAREN [Concomitant]
     Route: 048
     Dates: start: 20120308
  13. MAGMITT [Concomitant]
     Route: 048
     Dates: start: 20120315
  14. ALLOPURINOL [Concomitant]
     Route: 048
     Dates: start: 20120404

REACTIONS (4)
  - LOSS OF CONSCIOUSNESS [None]
  - PYELONEPHRITIS [None]
  - BLOOD CREATININE INCREASED [None]
  - ANAEMIA [None]
